FAERS Safety Report 21664863 (Version 1)
Quarter: 2022Q4

REPORT INFORMATION
  Report Type: Spontaneous
  Country: US (occurrence: US)
  Receive Date: 20221130
  Receipt Date: 20221130
  Transmission Date: 20230113
  Serious: Yes (Hospitalization, Other)
  Sender: FDA-Public Use
  Company Number: US-SA-SAC20221129001477

PATIENT
  Age: 83 Year
  Sex: Male

DRUGS (7)
  1. DUPIXENT [Suspect]
     Active Substance: DUPILUMAB
     Indication: Nasal polyps
     Dosage: UNK UNK, QOW
     Route: 058
     Dates: start: 20221012
  2. METOPROLOL [Concomitant]
     Active Substance: METOPROLOL
  3. TORSEMIDE [Concomitant]
     Active Substance: TORSEMIDE
  4. MONTELUKAST [Concomitant]
     Active Substance: MONTELUKAST SODIUM
  5. ROSUVASTATIN [Concomitant]
     Active Substance: ROSUVASTATIN
  6. CALCIUM [Concomitant]
     Active Substance: CALCIUM
  7. VITAMINS NOS [Concomitant]
     Active Substance: VITAMINS

REACTIONS (1)
  - Atrial fibrillation [Unknown]

NARRATIVE: CASE EVENT DATE: 20221107
